FAERS Safety Report 16464418 (Version 2)
Quarter: 2019Q3

REPORT INFORMATION
  Report Type: Report from Study
  Country: US (occurrence: US)
  Receive Date: 20190621
  Receipt Date: 20190807
  Transmission Date: 20191004
  Serious: No
  Sender: FDA-Public Use
  Company Number: PHEH2019US025124

PATIENT
  Age: 57 Year
  Sex: Female

DRUGS (1)
  1. COSENTYX [Suspect]
     Active Substance: SECUKINUMAB
     Indication: ANKYLOSING SPONDYLITIS
     Dosage: 150MG, ONCE A WEEK
     Route: 058

REACTIONS (6)
  - Oral mucosal blistering [Unknown]
  - Oral pain [Unknown]
  - Tongue coated [Unknown]
  - Gastrooesophageal reflux disease [Unknown]
  - Oropharyngeal plaque [Unknown]
  - Oropharyngeal discomfort [Unknown]
